FAERS Safety Report 8812763 (Version 2)
Quarter: 2015Q3

REPORT INFORMATION
  Report Type: Report from Study
  Country: US (occurrence: US)
  Receive Date: 20120927
  Receipt Date: 20150701
  Transmission Date: 20151125
  Serious: Yes (Death, Hospitalization, Other)
  Sender: FDA-Public Use
  Company Number: US-ROCHE-1128406

PATIENT
  Sex: Female

DRUGS (44)
  1. AVASTIN [Suspect]
     Active Substance: BEVACIZUMAB
     Indication: BONE CANCER
  2. MOXIFLOXACIN. [Concomitant]
     Active Substance: MOXIFLOXACIN
     Route: 048
     Dates: start: 20060907
  3. METRONIDAZOLE. [Concomitant]
     Active Substance: METRONIDAZOLE
  4. AVASTIN [Suspect]
     Active Substance: BEVACIZUMAB
     Indication: BREAST CANCER FEMALE
     Route: 042
     Dates: start: 20060910
  5. CEFIXIME. [Concomitant]
     Active Substance: CEFIXIME
     Indication: PRODUCT USED FOR UNKNOWN INDICATION
     Route: 048
  6. AZITHROMYCIN [Concomitant]
     Active Substance: AZITHROMYCIN ANHYDROUS
  7. VERSED [Concomitant]
     Active Substance: MIDAZOLAM HYDROCHLORIDE
     Route: 065
  8. FENTANYL. [Concomitant]
     Active Substance: FENTANYL
     Route: 065
  9. TYLENOL [Concomitant]
     Active Substance: ACETAMINOPHEN
     Route: 065
  10. CODEINE [Concomitant]
     Active Substance: CODEINE
     Indication: COUGH
     Route: 065
  11. PEPCID [Concomitant]
     Active Substance: FAMOTIDINE
     Route: 065
  12. XOPENEX [Concomitant]
     Active Substance: LEVALBUTEROL HYDROCHLORIDE
     Route: 011
  13. CARBOPLATIN. [Concomitant]
     Active Substance: CARBOPLATIN
     Route: 065
  14. N-ACETYL CYSTEINE [Concomitant]
  15. CIPROFLOXACIN. [Concomitant]
     Active Substance: CIPROFLOXACIN
  16. IPRATROPIUM [Concomitant]
     Active Substance: IPRATROPIUM
  17. TUSSIONEX PENNKINETIC [Concomitant]
     Active Substance: CHLORPHENIRAMINE\HYDROCODONE
     Indication: COUGH
     Route: 048
  18. TAXOTERE [Concomitant]
     Active Substance: DOCETAXEL
     Route: 065
  19. SOLU-MEDROL [Concomitant]
     Active Substance: METHYLPREDNISOLONE SODIUM SUCCINATE
     Route: 065
  20. FLAGYL [Concomitant]
     Active Substance: METRONIDAZOLE\METRONIDAZOLE HYDROCHLORIDE
     Route: 065
     Dates: start: 20060927
  21. LASIX [Concomitant]
     Active Substance: FUROSEMIDE
     Route: 065
  22. FILGRASTIM [Concomitant]
     Active Substance: FILGRASTIM
     Route: 065
  23. ALBUTEROL. [Concomitant]
     Active Substance: ALBUTEROL
     Route: 065
  24. PROCEL [Concomitant]
     Dosage: 3 PACKETS
     Route: 065
  25. IMIPENEM [Concomitant]
     Active Substance: IMIPENEM
     Route: 065
     Dates: start: 20060927
  26. METHYLPREDNISOLONE. [Concomitant]
     Active Substance: METHYLPREDNISOLONE
     Route: 042
  27. POTASSIUM CHLORIDE. [Concomitant]
     Active Substance: POTASSIUM CHLORIDE
     Route: 065
  28. HERCEPTIN [Suspect]
     Active Substance: TRASTUZUMAB
     Indication: PRODUCT USED FOR UNKNOWN INDICATION
     Route: 065
  29. ATROVENT [Concomitant]
     Active Substance: IPRATROPIUM BROMIDE
     Route: 065
  30. VITAMIN B6 [Concomitant]
     Active Substance: PYRIDOXINE HYDROCHLORIDE
  31. SENNA [Concomitant]
     Active Substance: SENNA LEAF\SENNOSIDES\SENNOSIDES A AND B
     Route: 065
  32. FULVESTRANT [Concomitant]
     Active Substance: FULVESTRANT
     Route: 065
     Dates: start: 20060810
  33. AVASTIN [Suspect]
     Active Substance: BEVACIZUMAB
     Indication: BONE CANCER
  34. NAVELBINE [Concomitant]
     Active Substance: VINORELBINE TARTRATE
     Route: 065
  35. FASLODEX [Concomitant]
     Active Substance: FULVESTRANT
     Route: 030
  36. MORPHINE SULFATE. [Concomitant]
     Active Substance: MORPHINE SULFATE
     Route: 058
  37. POTASSIUM CHLORIDE. [Concomitant]
     Active Substance: POTASSIUM CHLORIDE
     Route: 065
  38. PROPOFOL. [Concomitant]
     Active Substance: PROPOFOL
  39. VANCOMYCIN [Concomitant]
     Active Substance: VANCOMYCIN
     Route: 065
     Dates: start: 20060920
  40. ZOMETA [Concomitant]
     Active Substance: ZOLEDRONIC ACID
  41. DEXAMETHASONE. [Concomitant]
     Active Substance: DEXAMETHASONE
     Route: 065
     Dates: start: 20060907
  42. LEVALBUTEROL. [Concomitant]
     Active Substance: LEVALBUTEROL
  43. INSULIN [Concomitant]
     Active Substance: INSULIN NOS
     Dosage: 7 UNITS
     Route: 065
  44. HEPARIN [Concomitant]
     Active Substance: HEPARIN SODIUM
     Route: 058

REACTIONS (35)
  - Death [Fatal]
  - Acute respiratory failure [Unknown]
  - Vascular calcification [Unknown]
  - Polyuria [Unknown]
  - Insomnia [Unknown]
  - Ear discomfort [Unknown]
  - Obstructive airways disorder [Unknown]
  - Dizziness [Unknown]
  - Bronchospasm [Unknown]
  - Pulmonary valve incompetence [Unknown]
  - Exophthalmos [Unknown]
  - Thrombocytopenia [Recovering/Resolving]
  - Cardiomyopathy [Unknown]
  - Pulmonary haemorrhage [Unknown]
  - Oedema [Unknown]
  - Lymphangiosis carcinomatosa [Unknown]
  - Pyrexia [Unknown]
  - Productive cough [Unknown]
  - Decreased appetite [Unknown]
  - Pulmonary arterial pressure increased [Unknown]
  - Fatigue [Unknown]
  - Pulmonary arterial hypertension [Unknown]
  - Neutropenia [Recovering/Resolving]
  - Acute coronary syndrome [Unknown]
  - Orthopnoea [Unknown]
  - Hypercapnia [Unknown]
  - Respiratory tract oedema [Unknown]
  - Dyspnoea [Recovered/Resolved]
  - Pneumonia [Unknown]
  - Chills [Unknown]
  - Headache [Unknown]
  - Sinus tachycardia [Unknown]
  - Ventricular hypokinesia [Unknown]
  - Tachypnoea [Unknown]
  - Off label use [Unknown]
